FAERS Safety Report 17441296 (Version 1)
Quarter: 2020Q1

REPORT INFORMATION
  Report Type: Spontaneous
  Country: US (occurrence: US)
  Receive Date: 20200220
  Receipt Date: 20200220
  Transmission Date: 20200409
  Serious: Yes (Hospitalization)
  Sender: FDA-Public Use
  Company Number: US-PFIZER INC-2020066014

PATIENT
  Age: 49 Year
  Sex: Female

DRUGS (11)
  1. HYDROMORPHONE HYDROCHLORIDE. [Suspect]
     Active Substance: HYDROMORPHONE HYDROCHLORIDE
     Dosage: UNK (INFUSION TO 100 MG/H AND 100-MG BOLUSES EVERY 15 TO 30 MINUTES)
     Route: 040
  2. OXYCODONE HYDROCHLORIDE. [Suspect]
     Active Substance: OXYCODONE HYDROCHLORIDE
     Indication: PAIN
     Dosage: UNK (VERY HIGH DOSES), OUTPATIENT REGIMEN
  3. LORAZEPAM. [Concomitant]
     Active Substance: LORAZEPAM
     Indication: MYOCLONUS
     Dosage: UNK, OUTPATIENT REGIMEN
     Route: 042
  4. HYDROMORPHONE HYDROCHLORIDE. [Suspect]
     Active Substance: HYDROMORPHONE HYDROCHLORIDE
     Indication: PAIN
     Dosage: UNK (INFUSION)
     Route: 042
  5. CELECOXIB. [Concomitant]
     Active Substance: CELECOXIB
     Indication: PAIN
     Dosage: UNK (OUTPATIENT REGIMEN)
  6. AMITRIPTYLINE [Concomitant]
     Active Substance: AMITRIPTYLINE
     Indication: PAIN
     Dosage: UNK (OUTPATIENT REGIMEN)
  7. MORPHINE SULFATE. [Suspect]
     Active Substance: MORPHINE SULFATE
     Indication: PAIN
     Dosage: UNK, OUTPATIENT REGIMEN,VERY HIGH DOSES
  8. HYDROMORPHONE HYDROCHLORIDE. [Suspect]
     Active Substance: HYDROMORPHONE HYDROCHLORIDE
     Dosage: UNK (40 MG/H WITH FREQUENT BOLUSES OF 5 TO 15 MG)
     Route: 040
  9. FENTANYL CITRATE. [Suspect]
     Active Substance: FENTANYL CITRATE
     Indication: PAIN
     Dosage: UNK
  10. LORAZEPAM. [Concomitant]
     Active Substance: LORAZEPAM
     Indication: PAIN
     Dosage: 64 MG, UNK(INCREASING DOSES)TOTALING 64 MG OVER 90 MINUTES
     Route: 042
  11. PHENOBARBITAL. [Concomitant]
     Active Substance: PHENOBARBITAL
     Indication: MYOCLONUS
     Dosage: UNK (LOADING DOSE, MAINTAINED ON A CONTINUOUS PHENOBARBITAL INFUSION)

REACTIONS (1)
  - Myoclonus [Unknown]
